FAERS Safety Report 6328745-7 (Version None)
Quarter: 2009Q3

REPORT INFORMATION
  Report Type: 
  Country: None (occurrence: None)
  Receive Date: 20090826
  Receipt Date: 20090817
  Transmission Date: 20100115
  Serious: Yes (Hospitalization)
  Sender: FDA-Public Use
  Company Number: FR-ASTRAZENECA-2009SE08667

PATIENT
  Age: 9203 Day
  Sex: Female

DRUGS (6)
  1. NAROPIN [Suspect]
     Indication: EPIDURAL ANAESTHESIA
     Route: 008
     Dates: start: 20090504
  2. NAROPIN [Suspect]
     Route: 008
     Dates: start: 20090504
  3. NAROPIN [Suspect]
     Route: 008
     Dates: start: 20090504
  4. SUFENTANIL CITRATE [Suspect]
     Indication: EPIDURAL ANAESTHESIA
     Route: 008
     Dates: start: 20090504
  5. SUFENTANIL CITRATE [Suspect]
     Route: 008
     Dates: start: 20090504
  6. SUFENTANIL CITRATE [Suspect]
     Route: 008
     Dates: start: 20090504

REACTIONS (1)
  - PANCREATITIS ACUTE [None]
